FAERS Safety Report 8443907-0 (Version None)
Quarter: 2012Q2

REPORT INFORMATION
  Report Type: 
  Country: None (occurrence: None)
  Receive Date: 20120618
  Receipt Date: 20120608
  Transmission Date: 20120825
  Serious: Yes (Hospitalization)
  Sender: FDA-Public Use
  Company Number: US-BAYER-2011-029679

PATIENT
  Age: 34 Year
  Sex: Female
  Weight: 61 kg

DRUGS (9)
  1. IRON [Concomitant]
     Indication: IRON DEFICIENCY
     Dosage: UNK
     Dates: start: 20080501, end: 20081201
  2. MECLIZINE [Concomitant]
     Indication: PNEUMONIA
     Dosage: 25 MG, UNK
     Dates: start: 20050818
  3. YASMIN [Suspect]
     Indication: ORAL CONTRACEPTION
     Dosage: UNK
     Dates: start: 20030329, end: 20030901
  4. YASMIN [Suspect]
     Dosage: UNK
     Dates: start: 20040401, end: 20050823
  5. PREDNISONE [Concomitant]
     Indication: PNEUMONIA
     Dosage: 20 MG, UNK
     Dates: start: 20050818
  6. ZITHROMAX [Concomitant]
     Indication: PNEUMONIA
     Dosage: 250 MG, UNK
     Dates: start: 20050814
  7. DIAZEPAM [Concomitant]
     Indication: PNEUMONIA
     Dosage: 2 MG, UNK
     Dates: start: 20050822
  8. LEXAPRO [Concomitant]
     Indication: DEPRESSION
     Dosage: UNK UNK, QD
     Dates: start: 20050427, end: 20050930
  9. ALBUTEROL [Concomitant]
     Indication: DYSPNOEA
     Dosage: 17HM/2 PUFFS- 4-6 HOURS
     Dates: start: 20050817

REACTIONS (4)
  - PULMONARY EMBOLISM [None]
  - EMOTIONAL DISTRESS [None]
  - INJURY [None]
  - PAIN [None]
